FAERS Safety Report 16984676 (Version 1)
Quarter: 2019Q4

REPORT INFORMATION
  Report Type: Spontaneous
  Country: US (occurrence: US)
  Receive Date: 20191101
  Receipt Date: 20191101
  Transmission Date: 20200122
  Serious: Yes (Other)
  Sender: FDA-Public Use
  Company Number: US-JNJFOC-20191042063

PATIENT
  Sex: Male

DRUGS (1)
  1. IMBRUVICA [Suspect]
     Active Substance: IBRUTINIB
     Indication: PRODUCT USED FOR UNKNOWN INDICATION
     Dosage: 560 MG, QD
     Route: 048

REACTIONS (6)
  - Pruritus [Unknown]
  - Skin atrophy [Unknown]
  - Herpes zoster [Unknown]
  - Fatigue [Unknown]
  - Haemorrhagic diathesis [Unknown]
  - Cataract [Unknown]
